FAERS Safety Report 16814446 (Version 1)
Quarter: 2019Q3

REPORT INFORMATION
  Report Type: Spontaneous
  Country: US (occurrence: US)
  Receive Date: 20190917
  Receipt Date: 20190917
  Transmission Date: 20191005
  Serious: No
  Sender: FDA-Public Use
  Company Number: US-LUPIN PHARMACEUTICALS INC.-2018-07760

PATIENT
  Sex: Female
  Weight: 64.85 kg

DRUGS (1)
  1. PIRMELLA 7/7/7 [Suspect]
     Active Substance: ETHINYL ESTRADIOL\NORETHINDRONE
     Indication: CONTRACEPTION
     Dosage: 0.5MG,0.75MG,1MG/0.035MG
     Route: 048

REACTIONS (1)
  - Alopecia [Not Recovered/Not Resolved]
